FAERS Safety Report 5492828-4 (Version None)
Quarter: 2007Q4

REPORT INFORMATION
  Report Type: 
  Country: None (occurrence: None)
  Receive Date: 20071019
  Receipt Date: 20071004
  Transmission Date: 20080405
  Serious: Yes (Hospitalization)
  Sender: FDA-Public Use
  Company Number: 230451K07CAN

PATIENT
  Sex: Female

DRUGS (7)
  1. REBIF [Suspect]
     Indication: MULTIPLE SCLEROSIS
     Dosage: 44 MCG, 44 MCG
     Dates: start: 20070711, end: 20070802
  2. REBIF [Suspect]
     Indication: MULTIPLE SCLEROSIS
     Dosage: 44 MCG, 44 MCG
     Dates: start: 20071001
  3. AMLODIPINE [Concomitant]
  4. HYDROCHLOROTHIAZIDE [Concomitant]
  5. ROSUVASTATIN [Concomitant]
  6. VENLAFAXINE HCL [Concomitant]
  7. ERGOCALCIFEROL [Concomitant]

REACTIONS (8)
  - AGEUSIA [None]
  - ANOREXIA [None]
  - ANOSMIA [None]
  - DYSGEUSIA [None]
  - INJECTION SITE PAIN [None]
  - TREMOR [None]
  - VISION BLURRED [None]
  - WEIGHT DECREASED [None]
